FAERS Safety Report 9086968 (Version 2)
Quarter: 2013Q1

REPORT INFORMATION
  Report Type: Spontaneous
  Country: US (occurrence: US)
  Receive Date: 20130131
  Receipt Date: 20130221
  Transmission Date: 20140127
  Serious: Yes (Disabling, Other)
  Sender: FDA-Public Use
  Company Number: US-PFIZER INC-2013033512

PATIENT
  Age: 53 Year
  Sex: Male
  Weight: 124 kg

DRUGS (7)
  1. NEURONTIN [Suspect]
     Indication: BLOOD DISORDER
     Dosage: 100 MG, ONCE
     Dates: start: 20070616, end: 20070616
  2. NEURONTIN [Suspect]
     Indication: NEUROPATHY PERIPHERAL
  3. LYRICA [Suspect]
     Indication: BURNING SENSATION
     Dosage: 50 MG, UNK
     Dates: start: 20070627, end: 20071015
  4. ALEVE [Suspect]
     Indication: BURNING SENSATION
     Dosage: 200 MG, UNK
  5. METFORMIN [Concomitant]
     Indication: DIABETES MELLITUS
     Dosage: 1000 MG, 2X/DAY
  6. NOVOLOG [Concomitant]
     Indication: DIABETES MELLITUS
     Dosage: 65 IU, 2X/DAY
  7. LANTUS [Concomitant]
     Indication: DIABETES MELLITUS
     Dosage: 65 IU, 2X/DAY

REACTIONS (7)
  - Lacunar infarction [Unknown]
  - Frontotemporal dementia [Unknown]
  - Eye disorder [Unknown]
  - Head discomfort [Unknown]
  - Disturbance in attention [Unknown]
  - Memory impairment [Unknown]
  - Drug ineffective [Unknown]
